FAERS Safety Report 17440979 (Version 1)
Quarter: 2020Q1

REPORT INFORMATION
  Report Type: Report from Study
  Country: CA (occurrence: CA)
  Receive Date: 20200220
  Receipt Date: 20200220
  Transmission Date: 20200409
  Serious: Yes (Other)
  Sender: FDA-Public Use
  Company Number: CA-AMGEN-CANNI2019214988

PATIENT
  Age: 47 Year
  Sex: Female

DRUGS (1)
  1. AIMOVIG [Suspect]
     Active Substance: ERENUMAB-AOOE
     Indication: MIGRAINE
     Dosage: 140 MILLIGRAM, QMO
     Route: 058
     Dates: start: 20191216

REACTIONS (17)
  - Paraesthesia [Recovering/Resolving]
  - Hypoaesthesia [Recovering/Resolving]
  - Confusional state [Recovering/Resolving]
  - Gait inability [Unknown]
  - Vision blurred [Recovering/Resolving]
  - Headache [Unknown]
  - Amnesia [Recovering/Resolving]
  - Deafness [Recovering/Resolving]
  - Fluid retention [Recovered/Resolved]
  - Asthenia [Recovering/Resolving]
  - Speech disorder [Recovering/Resolving]
  - Sensory loss [Recovering/Resolving]
  - Hemiplegia [Recovering/Resolving]
  - Muscular weakness [Recovering/Resolving]
  - Anxiety [Not Recovered/Not Resolved]
  - Facial paralysis [Recovering/Resolving]
  - Palpitations [Recovered/Resolved]

NARRATIVE: CASE EVENT DATE: 20191219
